FAERS Safety Report 13764712 (Version 2)
Quarter: 2017Q4

REPORT INFORMATION
  Report Type: Spontaneous
  Country: US (occurrence: US)
  Receive Date: 20170718
  Receipt Date: 20171116
  Transmission Date: 20180320
  Serious: No
  Sender: FDA-Public Use
  Company Number: US-BAUSCH-BL-2017-004677

PATIENT
  Sex: Female
  Weight: 64.01 kg

DRUGS (2)
  1. LEXPRO [Concomitant]
     Indication: DEPRESSION
  2. XIFAXAN [Suspect]
     Active Substance: RIFAXIMIN
     Indication: IRRITABLE BOWEL SYNDROME
     Route: 048
     Dates: start: 20170216, end: 20170221

REACTIONS (3)
  - Treatment noncompliance [Unknown]
  - No adverse event [Unknown]
  - Drug ineffective [Unknown]
